FAERS Safety Report 13717969 (Version 6)
Quarter: 2017Q4

REPORT INFORMATION
  Report Type: Report from Study
  Country: BR (occurrence: BR)
  Receive Date: 20170705
  Receipt Date: 20171215
  Transmission Date: 20180320
  Serious: Yes (Other)
  Sender: FDA-Public Use
  Company Number: BR-UCBSA-2017025914

PATIENT
  Age: 59 Year
  Sex: Female
  Weight: 75 kg

DRUGS (16)
  1. OMEPRAZOLE. [Concomitant]
     Active Substance: OMEPRAZOLE
     Indication: PROPHYLAXIS
     Dosage: 20 MG, ONCE DAILY (QD)
     Route: 048
     Dates: start: 2009
  2. ENALAPRIL [Concomitant]
     Active Substance: ENALAPRIL
     Indication: HYPERTENSION
     Dosage: 20 MG, 2X/DAY (BID)
     Route: 048
     Dates: start: 2007
  3. FLUOXETIN [Concomitant]
     Active Substance: FLUOXETINE HYDROCHLORIDE
     Indication: PAIN IN EXTREMITY
     Dosage: 20 MG, ONCE DAILY (QD)
     Route: 048
     Dates: start: 2011
  4. PARACETAMOL [Concomitant]
     Active Substance: ACETAMINOPHEN
     Indication: NASOPHARYNGITIS
  5. CERTOLIZUMAB PEGOL [Suspect]
     Active Substance: CERTOLIZUMAB PEGOL
     Dosage: 400 MG, EV 4 WEEKS
     Dates: start: 2017, end: 2017
  6. CERTOLIZUMAB PEGOL [Suspect]
     Active Substance: CERTOLIZUMAB PEGOL
     Dosage: UNK
     Dates: start: 2017, end: 20171207
  7. NATRILIX [Concomitant]
     Active Substance: INDAPAMIDE
     Indication: HYPERTENSION
     Dosage: 1.5 MG, ONCE DAILY (QD)
     Route: 048
     Dates: start: 2007
  8. ZYMAR [Concomitant]
     Active Substance: GATIFLOXACIN
     Indication: INFECTION
     Dosage: UNK
     Route: 061
     Dates: start: 20170627
  9. FLUOXETIN [Concomitant]
     Active Substance: FLUOXETINE HYDROCHLORIDE
     Indication: DEPRESSION
  10. OPTIVE [Concomitant]
     Active Substance: CARBOXYMETHYLCELLULOSE SODIUM\GLYCERIN
     Indication: NASOPHARYNGITIS
  11. CERTOLIZUMAB PEGOL [Suspect]
     Active Substance: CERTOLIZUMAB PEGOL
     Indication: CROHN^S DISEASE
     Dosage: 400 MG, EV 2 WEEKS(QOW)
     Dates: start: 20170603, end: 201706
  12. INSULIN [Concomitant]
     Active Substance: INSULIN NOS
     Indication: DIABETES MELLITUS
     Dosage: ONCE DAILY (QD)
     Route: 058
     Dates: start: 2009
  13. DIAMICRON [Concomitant]
     Active Substance: GLICLAZIDE
     Indication: DIABETES MELLITUS
     Dosage: UNK, 2X/DAY (BID)
     Route: 048
  14. GLIFAGE [Concomitant]
     Active Substance: METFORMIN HYDROCHLORIDE
     Indication: DIABETES MELLITUS
     Dosage: 500 MG, 3X/DAY (TID)
     Route: 048
     Dates: start: 2013
  15. ACYCLOVIR. [Concomitant]
     Active Substance: ACYCLOVIR
     Indication: HERPES VIRUS INFECTION
     Dosage: 400 MG, UNK
     Route: 048
     Dates: start: 20170627
  16. DIPYRONE [Concomitant]
     Active Substance: DIPYRONE
     Indication: PYREXIA

REACTIONS (4)
  - Decreased immune responsiveness [Not Recovered/Not Resolved]
  - Nasopharyngitis [Recovering/Resolving]
  - Conjunctivitis [Recovered/Resolved]
  - Ophthalmic herpes simplex [Not Recovered/Not Resolved]

NARRATIVE: CASE EVENT DATE: 201706
